FAERS Safety Report 4595499-4 (Version None)
Quarter: 2005Q1

REPORT INFORMATION
  Report Type: 
  Country: None (occurrence: None)
  Receive Date: 20050302
  Receipt Date: 20050223
  Transmission Date: 20050727
  Serious: Yes (Other)
  Sender: FDA-Public Use
  Company Number: JP-JNJFOC-20050106960

PATIENT
  Sex: Female

DRUGS (18)
  1. REMICADE [Suspect]
     Route: 042
  2. REMICADE [Suspect]
     Route: 042
  3. REMICADE [Suspect]
     Indication: RHEUMATOID ARTHRITIS
     Route: 042
  4. PREDNISONE [Suspect]
     Route: 049
  5. PREDNISONE [Suspect]
     Route: 049
  6. PREDNISONE [Suspect]
     Indication: RHEUMATOID ARTHRITIS
     Route: 049
  7. RHEUMATREX [Suspect]
     Indication: RHEUMATOID ARTHRITIS
     Route: 049
  8. LOXONIN [Concomitant]
     Route: 049
  9. VOLTAREN [Concomitant]
     Indication: RHEUMATOID ARTHRITIS
  10. FOLIAMIN [Concomitant]
     Route: 049
  11. ALFAROL [Concomitant]
     Indication: OSTEOPOROSIS
     Route: 049
  12. BENET [Concomitant]
     Indication: OSTEOPOROSIS
     Route: 049
  13. ISONIAZID [Concomitant]
     Indication: TUBERCULOSIS PROPHYLAXIS
     Route: 049
  14. CYTOTEC [Concomitant]
     Indication: GASTRITIS
     Route: 049
  15. ACINON [Concomitant]
     Indication: GASTRITIS
     Route: 049
  16. MEVALOTIN [Concomitant]
     Route: 049
  17. LANSAP [Concomitant]
     Dosage: 1 SHEET
     Route: 049
  18. DIDRONEL [Concomitant]
     Indication: OSTEOPOROSIS
     Route: 049

REACTIONS (1)
  - MYCOBACTERIUM AVIUM COMPLEX INFECTION [None]
